FAERS Safety Report 9212293 (Version 2)
Quarter: 2013Q2

REPORT INFORMATION
  Report Type: Spontaneous
  Country: US (occurrence: US)
  Receive Date: 20130404
  Receipt Date: 20130604
  Transmission Date: 20140414
  Serious: No
  Sender: FDA-Public Use
  Company Number: US-AMGEN-USASP2013019706

PATIENT
  Age: 49 Year
  Sex: Female
  Weight: 82.54 kg

DRUGS (4)
  1. ENBREL [Suspect]
     Indication: PSORIATIC ARTHROPATHY
     Dosage: 50 MG, QWK
     Dates: start: 20130204
  2. METHOTREXATE [Concomitant]
     Dosage: 15 MG, QWK
     Route: 048
  3. TRAMADOL [Concomitant]
     Dosage: 50 MG, BID
     Route: 048
  4. MOTRIN [Concomitant]
     Dosage: 600 MG, BID
     Route: 048

REACTIONS (3)
  - Headache [Recovered/Resolved]
  - Injection site inflammation [Recovered/Resolved]
  - Injection site erythema [Not Recovered/Not Resolved]
